FAERS Safety Report 9789052 (Version 1)
Quarter: 2013Q4

REPORT INFORMATION
  Report Type: Spontaneous
  Country: DE (occurrence: DE)
  Receive Date: 20131230
  Receipt Date: 20131230
  Transmission Date: 20140711
  Serious: Yes (Hospitalization)
  Sender: FDA-Public Use
  Company Number: DE-B.I. PHARMACEUTICALS,INC./RIDGEFIELD-2013-BI-43625DE

PATIENT
  Age: 84 Year
  Sex: Male
  Weight: 65 kg

DRUGS (6)
  1. PRADAXA [Suspect]
     Indication: ATRIAL FIBRILLATION
     Dosage: 110 MG
     Dates: start: 2013
  2. PRADAXA [Suspect]
     Dosage: 220 MG
     Dates: start: 201310
  3. ATACAND [Concomitant]
  4. AMLODIPIN [Concomitant]
  5. BELOC ZOK [Concomitant]
  6. MAGNESIUM [Concomitant]

REACTIONS (8)
  - Cerebrovascular accident [Recovered/Resolved]
  - Speech disorder [Recovered/Resolved]
  - Blood urine present [Not Recovered/Not Resolved]
  - Haemorrhage urinary tract [Not Recovered/Not Resolved]
  - Haematuria [Unknown]
  - Dyspepsia [Unknown]
  - Cystitis [Unknown]
  - Off label use [Recovered/Resolved]
